FAERS Safety Report 23565329 (Version 1)
Quarter: 2024Q1

REPORT INFORMATION
  Report Type: Other
  Country: CN (occurrence: None)
  Receive Date: 20240226
  Receipt Date: 20240226
  Transmission Date: 20240409
  Serious: Yes (Other)
  Sender: FDA-Public Use
  Company Number: CN-ROCHE-3514126

PATIENT

DRUGS (3)
  1. BEVACIZUMAB [Suspect]
     Active Substance: BEVACIZUMAB
     Indication: Triple negative breast cancer
     Dosage: ON DAYS 1 AND 15
     Route: 042
  2. CAPECITABINE [Suspect]
     Active Substance: CAPECITABINE
     Indication: Triple negative breast cancer
     Route: 048
  3. PACLITAXEL [Suspect]
     Active Substance: PACLITAXEL
     Indication: Triple negative breast cancer
     Route: 065

REACTIONS (56)
  - Neutropenia [Unknown]
  - Anaemia [Unknown]
  - Pancreatitis [Unknown]
  - Aspartate aminotransferase increased [Unknown]
  - Alanine aminotransferase increased [Unknown]
  - Gingivitis [Unknown]
  - Gamma-glutamyltransferase increased [Unknown]
  - Pneumonia [Unknown]
  - Thrombocytopenia [Unknown]
  - Activated partial thromboplastin time prolonged [Unknown]
  - Nausea [Unknown]
  - Abdominal pain [Unknown]
  - Diarrhoea [Unknown]
  - Abdominal distension [Unknown]
  - Constipation [Unknown]
  - Upper gastrointestinal haemorrhage [Unknown]
  - Mucosal inflammation [Unknown]
  - Mouth haemorrhage [Unknown]
  - Dry mouth [Unknown]
  - Blood alkaline phosphatase increased [Unknown]
  - Blood bilirubin increased [Unknown]
  - Blood lactate dehydrogenase increased [Unknown]
  - Blood creatinine increased [Unknown]
  - Proteinuria [Unknown]
  - Urinary tract infection [Unknown]
  - Hypertension [Unknown]
  - Hyperglycaemia [Unknown]
  - Blood thyroid stimulating hormone increased [Unknown]
  - Peripheral sensory neuropathy [Unknown]
  - Palmar-plantar erythrodysaesthesia syndrome [Unknown]
  - Dizziness [Unknown]
  - Trigeminal nerve disorder [Unknown]
  - Rash [Unknown]
  - Nail discolouration [Unknown]
  - Onychomadesis [Unknown]
  - Skin hyperpigmentation [Unknown]
  - Arthralgia [Unknown]
  - Cough [Unknown]
  - Epistaxis [Unknown]
  - Oropharyngeal pain [Unknown]
  - Vision blurred [Unknown]
  - Herpes zoster [Unknown]
  - Paronychia [Unknown]
  - Palpitations [Unknown]
  - Fatigue [Unknown]
  - Pyrexia [Unknown]
  - Generalised oedema [Unknown]
  - Oedema peripheral [Unknown]
  - Hypokalaemia [Unknown]
  - Hypomagnesaemia [Unknown]
  - Hyponatraemia [Unknown]
  - Hypophosphataemia [Unknown]
  - Pain [Unknown]
  - Face oedema [Unknown]
  - Chest discomfort [Unknown]
  - Periorbital oedema [Unknown]
